FAERS Safety Report 25492281 (Version 1)
Quarter: 2025Q2

REPORT INFORMATION
  Report Type: Spontaneous
  Country: US (occurrence: US)
  Receive Date: 20250630
  Receipt Date: 20250630
  Transmission Date: 20250717
  Serious: No
  Sender: ROCHE
  Company Number: US-ROCHE-10000321689

PATIENT
  Sex: Male

DRUGS (2)
  1. ALECENSA [Suspect]
     Active Substance: ALECTINIB HYDROCHLORIDE
     Indication: Lung neoplasm malignant
     Route: 048
     Dates: start: 202310
  2. ENOXAPARIN SODIUM [Concomitant]
     Active Substance: ENOXAPARIN SODIUM

REACTIONS (2)
  - Hallucination, visual [Unknown]
  - Hallucination, auditory [Unknown]
